FAERS Safety Report 8558306-0 (Version None)
Quarter: 2012Q3

REPORT INFORMATION
  Report Type: 
  Country: None (occurrence: None)
  Receive Date: 20120801
  Receipt Date: 20120720
  Transmission Date: 20120928
  Serious: Yes (Hospitalization, Other)
  Sender: FDA-Public Use
  Company Number: US-009507513-1201USA00751

PATIENT

DRUGS (4)
  1. FOSAMAX PLUS D [Suspect]
     Indication: OSTEOPOROSIS
     Dosage: D (2800)
     Route: 048
     Dates: start: 20061109, end: 20090501
  2. FOSAMAX [Suspect]
     Dosage: 70 MG, UNK
     Route: 048
     Dates: start: 20090629, end: 20091201
  3. CALCIUM (UNSPECIFIED) [Concomitant]
     Indication: OSTEOPOROSIS
     Dosage: 1500 MG, QD
     Dates: start: 20011113, end: 20070101
  4. FOSAMAX [Suspect]
     Indication: OSTEOPOROSIS
     Dosage: 70 MG, UNK
     Route: 048
     Dates: start: 20011224, end: 20061001

REACTIONS (12)
  - FEMUR FRACTURE [None]
  - DEVICE FAILURE [None]
  - FOOT FRACTURE [None]
  - HYPOTHYROIDISM [None]
  - DIABETES MELLITUS [None]
  - ARTHROSCOPY [None]
  - ENDODONTIC PROCEDURE [None]
  - LOW TURNOVER OSTEOPATHY [None]
  - ADVERSE EVENT [None]
  - PERIODONTAL OPERATION [None]
  - HIP ARTHROPLASTY [None]
  - HYPERTENSION [None]
